FAERS Safety Report 21961858 (Version 1)
Quarter: 2023Q1

REPORT INFORMATION
  Report Type: Other
  Country: None (occurrence: KR)
  Receive Date: 20230207
  Receipt Date: 20230207
  Transmission Date: 20230417
  Serious: Yes (Other)
  Sender: FDA-Public Use
  Company Number: KR-Spectra Medical Devices, LLC-2137602

PATIENT
  Age: 47 Year
  Sex: Female

DRUGS (1)
  1. LIDOCAINE HYDROCHLORIDE ANHYDROUS [Suspect]
     Active Substance: LIDOCAINE HYDROCHLORIDE ANHYDROUS
     Indication: Nerve block
     Route: 065

REACTIONS (2)
  - Toxicity to various agents [Recovering/Resolving]
  - Nerve root injury cervical [Recovering/Resolving]
